FAERS Safety Report 15929444 (Version 2)
Quarter: 2019Q1

REPORT INFORMATION
  Report Type: Spontaneous
  Country: BE (occurrence: BE)
  Receive Date: 20190206
  Receipt Date: 20190219
  Transmission Date: 20190417
  Serious: Yes (Other)
  Sender: FDA-Public Use
  Company Number: BE-TAKEDA-2019TUS004470

PATIENT
  Age: 52 Year
  Sex: Male

DRUGS (19)
  1. CYCLOPHOSPHAMIDE. [Suspect]
     Active Substance: CYCLOPHOSPHAMIDE
     Indication: HYPERGAMMAGLOBULINAEMIA BENIGN MONOCLONAL
  2. CETIRIZINE [Concomitant]
     Active Substance: CETIRIZINE HYDROCHLORIDE
     Indication: CAPILLARY LEAK SYNDROME
  3. VELCADE [Suspect]
     Active Substance: BORTEZOMIB
     Indication: HYPERGAMMAGLOBULINAEMIA BENIGN MONOCLONAL
  4. XANTHIUM [Concomitant]
     Indication: HYPERGAMMAGLOBULINAEMIA BENIGN MONOCLONAL
  5. CYCLOPHOSPHAMIDE. [Suspect]
     Active Substance: CYCLOPHOSPHAMIDE
     Indication: CAPILLARY LEAK SYNDROME
     Dosage: UNK
     Route: 065
  6. MONTELUKAST [Concomitant]
     Active Substance: MONTELUKAST SODIUM
     Indication: CAPILLARY LEAK SYNDROME
  7. RANITIDINE. [Concomitant]
     Active Substance: RANITIDINE
     Indication: CAPILLARY LEAK SYNDROME
  8. DEXAMETHASONE. [Suspect]
     Active Substance: DEXAMETHASONE
     Indication: HYPERGAMMAGLOBULINAEMIA BENIGN MONOCLONAL
  9. MULTIGAM [Concomitant]
     Active Substance: HUMAN IMMUNOGLOBULIN G
     Indication: CAPILLARY LEAK SYNDROME
     Dosage: UNK
     Route: 042
  10. ATORVASTATIN [Concomitant]
     Active Substance: ATORVASTATIN
     Indication: DYSLIPIDAEMIA
     Dosage: 40 MILLIGRAM, QD
     Route: 065
  11. MULTIGAM [Concomitant]
     Active Substance: HUMAN IMMUNOGLOBULIN G
     Indication: HYPERGAMMAGLOBULINAEMIA BENIGN MONOCLONAL
  12. CETIRIZINE [Concomitant]
     Active Substance: CETIRIZINE HYDROCHLORIDE
     Indication: HYPERGAMMAGLOBULINAEMIA BENIGN MONOCLONAL
     Dosage: 10 MILLIGRAM
     Route: 065
  13. VELCADE [Suspect]
     Active Substance: BORTEZOMIB
     Indication: CAPILLARY LEAK SYNDROME
     Dosage: UNK
     Route: 065
  14. DEXAMETHASONE. [Suspect]
     Active Substance: DEXAMETHASONE
     Indication: CAPILLARY LEAK SYNDROME
     Dosage: UNK
     Route: 065
  15. CHOLECALCIFEROL [Concomitant]
     Active Substance: CHOLECALCIFEROL
     Indication: VITAMIN D DEFICIENCY
     Dosage: 25000 INTERNATIONAL UNIT, 1/WEEK
     Route: 065
  16. XANTHIUM [Concomitant]
     Indication: CAPILLARY LEAK SYNDROME
     Dosage: 400 MILLIGRAM
     Route: 065
  17. MONTELUKAST [Concomitant]
     Active Substance: MONTELUKAST SODIUM
     Indication: HYPERGAMMAGLOBULINAEMIA BENIGN MONOCLONAL
     Dosage: 10 MILLIGRAM
     Route: 065
  18. RAMIPRIL. [Concomitant]
     Active Substance: RAMIPRIL
     Indication: HYPERTENSION
     Dosage: 10 MILLIGRAM, QD
     Route: 065
  19. RANITIDINE. [Concomitant]
     Active Substance: RANITIDINE
     Indication: HYPERGAMMAGLOBULINAEMIA BENIGN MONOCLONAL
     Dosage: 300 MILLIGRAM
     Route: 065

REACTIONS (6)
  - Off label use [Unknown]
  - Polyneuropathy [Recovering/Resolving]
  - Diabetes mellitus [Recovering/Resolving]
  - Fatigue [Recovering/Resolving]
  - Vision blurred [Recovering/Resolving]
  - Product use in unapproved indication [Unknown]
